FAERS Safety Report 8781758 (Version 1)
Quarter: 2012Q4

REPORT INFORMATION
  Report Type: 
  Country: AU (occurrence: AU)
  Receive Date: 20120913
  Receipt Date: 20120913
  Transmission Date: 20130627
  Serious: Yes (Hospitalization)
  Sender: FDA-Public Use
  Company Number: AU-BAYER-2012-093694

PATIENT
  Age: 26 Year
  Sex: Female

DRUGS (3)
  1. CIPROFLOXACIN [Suspect]
     Indication: INFECTIVE PULMONARY EXACERBATION OF CYSTIC FIBROSIS
     Dosage: 750 mg, BID
     Route: 048
  2. INSULIN [Concomitant]
     Indication: CYSTIC FIBROSIS RELATED DIABETES
  3. BETAMETHASONE [Concomitant]
     Indication: MATERNAL THERAPY TO ENHANCE FOETAL LUNG MATURITY
     Dosage: 11.4 mg, BID
     Route: 030

REACTIONS (6)
  - HELLP syndrome [Recovered/Resolved]
  - Infective pulmonary exacerbation of cystic fibrosis [None]
  - Premature delivery [Recovered/Resolved]
  - Platelet count decreased [None]
  - Pre-eclampsia [None]
  - Exposure during pregnancy [None]
